FAERS Safety Report 10276720 (Version 1)
Quarter: 2014Q3

REPORT INFORMATION
  Report Type: Spontaneous
  Country: CO (occurrence: None)
  Receive Date: 20140701
  Receipt Date: 20140701
  Transmission Date: 20150326
  Serious: Yes (Other)
  Sender: FDA-Public Use
  Company Number: 2014-19831

PATIENT
  Age: 61 Year
  Sex: Male

DRUGS (1)
  1. EYLEA [Suspect]
     Active Substance: AFLIBERCEPT
     Indication: AGE-RELATED MACULAR DEGENERATION
     Dosage: THREE FIRT INJECTIONS MONTHLY IN JANUARY, FEBRUARY, AND MARCH 2014
     Dates: start: 201401

REACTIONS (3)
  - Inappropriate schedule of drug administration [None]
  - Blindness [None]
  - Swelling [None]

NARRATIVE: CASE EVENT DATE: 201401
